FAERS Safety Report 6178815-1 (Version None)
Quarter: 2009Q2

REPORT INFORMATION
  Report Type: 
  Country: None (occurrence: None)
  Receive Date: 20090504
  Receipt Date: 20090313
  Transmission Date: 20091009
  Serious: No
  Sender: FDA-Public Use
  Company Number: US-ALEXION-A200900207

PATIENT
  Sex: Male

DRUGS (8)
  1. SOLIRIS [Suspect]
     Indication: PAROXYSMAL NOCTURNAL HAEMOGLOBINURIA
     Dosage: 600 MG, QW
     Route: 042
     Dates: start: 20080804, end: 20080801
  2. SOLIRIS [Suspect]
     Dosage: 900 MG, Q2W
     Route: 042
     Dates: start: 20080902
  3. LORAZEPAM [Concomitant]
     Dosage: UNK
     Route: 048
  4. WARFARIN SODIUM [Concomitant]
     Dosage: UNK
  5. SPIRONOLACTONE [Concomitant]
     Dosage: 150 MG, QD
     Route: 048
     Dates: end: 20090301
  6. PREDNISONE [Concomitant]
     Dosage: 10 MG, QD
     Route: 048
  7. NADOLOL [Concomitant]
     Dosage: 80 MG, BID
  8. COMPAZINE                          /00013302/ [Concomitant]
     Dosage: UNK
     Route: 048

REACTIONS (1)
  - NAUSEA [None]
